FAERS Safety Report 10186734 (Version 3)
Quarter: 2014Q2

REPORT INFORMATION
  Report Type: Report from Study
  Country: FR (occurrence: FR)
  Receive Date: 20140521
  Receipt Date: 20140607
  Transmission Date: 20141212
  Serious: Yes (Other)
  Sender: FDA-Public Use
  Company Number: PHHY2014FR058607

PATIENT
  Age: 82 Year
  Sex: Female
  Weight: 37 kg

DRUGS (7)
  1. ACLASTA/ZOLEDRONATE [Suspect]
     Indication: OSTEOPOROTIC FRACTURE
     Dosage: 5 MG, UNK
     Route: 042
     Dates: start: 20120601
  2. ACLASTA/ZOLEDRONATE [Suspect]
     Dosage: 5 MG, UNK
     Route: 042
     Dates: start: 20130615
  3. INSULIN [Concomitant]
     Dates: start: 2012
  4. LANTUS [Concomitant]
     Indication: TYPE 1 DIABETES MELLITUS
     Dates: start: 2011, end: 201307
  5. LANTUS [Concomitant]
     Dosage: 100 IU, QD
  6. NOVONORM [Concomitant]
     Indication: TYPE 1 DIABETES MELLITUS
     Dates: start: 2010, end: 201307
  7. NOVONORM [Concomitant]
     Dosage: 2 MG, QD

REACTIONS (4)
  - Fall [Unknown]
  - Spinal fracture [Recovered/Resolved]
  - Back pain [Unknown]
  - Intervertebral disc compression [Unknown]
